FAERS Safety Report 7813860-9 (Version None)
Quarter: 2011Q4

REPORT INFORMATION
  Report Type: 
  Country: None (occurrence: None)
  Receive Date: 20111014
  Receipt Date: 20111005
  Transmission Date: 20120403
  Serious: Yes (Hospitalization)
  Sender: FDA-Public Use
  Company Number: US-BAYER-2011-027932

PATIENT
  Age: 26 Year
  Sex: Female
  Weight: 97.052 kg

DRUGS (4)
  1. BACTRIM DS [Concomitant]
     Indication: PILONIDAL CYST
  2. XANAX [Concomitant]
  3. YAZ [Suspect]
     Indication: PREMENSTRUAL SYNDROME
     Dosage: UNK
     Dates: start: 20090701
  4. PRINIVIL [Concomitant]
     Indication: HYPERTENSION
     Dosage: UNK UNK, QD

REACTIONS (9)
  - PULMONARY EMBOLISM [None]
  - EMOTIONAL DISTRESS [None]
  - HYPERTENSION [None]
  - GENERAL PHYSICAL HEALTH DETERIORATION [None]
  - PULMONARY FIBROSIS [None]
  - ANXIETY [None]
  - PAIN [None]
  - INJURY [None]
  - MENTAL DISORDER [None]
